FAERS Safety Report 11882481 (Version 1)
Quarter: 2015Q4

REPORT INFORMATION
  Report Type: Spontaneous
  Country: FR (occurrence: FR)
  Receive Date: 20151231
  Receipt Date: 20151231
  Transmission Date: 20160305
  Serious: Yes (Hospitalization)
  Sender: FDA-Public Use
  Company Number: FR-SA-2015SA219715

PATIENT
  Age: 18 Year
  Sex: Male

DRUGS (9)
  1. PARACETAMOL [Concomitant]
     Active Substance: ACETAMINOPHEN
  2. IZILOX [Suspect]
     Active Substance: MOXIFLOXACIN HYDROCHLORIDE
     Indication: LATENT TUBERCULOSIS
     Dosage: STRENGTH: 400 MG?ROUTE: O
     Route: 065
     Dates: start: 201506, end: 20150630
  3. RIFATER [Suspect]
     Active Substance: ISONIAZID\PYRAZINAMIDE\RIFAMPIN
     Route: 048
     Dates: start: 201506, end: 201506
  4. ACUPAN [Concomitant]
     Active Substance: NEFOPAM HYDROCHLORIDE
     Dates: start: 2015
  5. RIFINAH [Concomitant]
     Active Substance: ISONIAZID\RIFAMPIN
  6. DIERGO [Concomitant]
     Dosage: SPRAY
  7. RIMIFON [Suspect]
     Active Substance: ISONIAZID
     Indication: LATENT TUBERCULOSIS
     Dosage: ROUTE: O
     Route: 065
     Dates: start: 201506, end: 20150630
  8. TRAMADOL. [Concomitant]
     Active Substance: TRAMADOL
     Dates: start: 2015
  9. LOXAPAC [Concomitant]
     Active Substance: LOXAPINE SUCCINATE
     Dates: start: 2015

REACTIONS (3)
  - Hallucination [Recovered/Resolved]
  - Agitation [Recovering/Resolving]
  - Myoclonus [Recovered/Resolved]

NARRATIVE: CASE EVENT DATE: 20150629
